FAERS Safety Report 10111345 (Version 1)
Quarter: 2014Q2

REPORT INFORMATION
  Report Type: Report from Study
  Country: US (occurrence: US)
  Receive Date: 20140425
  Receipt Date: 20140425
  Transmission Date: 20141212
  Serious: Yes (Other)
  Sender: FDA-Public Use
  Company Number: PHHY2014US050382

PATIENT
  Age: 21 Year
  Sex: Male

DRUGS (4)
  1. GILENYA [Suspect]
     Indication: MULTIPLE SCLEROSIS
     Dosage: 0.5 MG, QD
     Route: 048
     Dates: start: 20130131
  2. VITAMIN D [Concomitant]
     Dosage: 2000 U, UNK
  3. SEROQUEL [Concomitant]
     Indication: DEPRESSION
     Dosage: 100 MG, QD
     Route: 048
  4. PROZAC [Concomitant]
     Dosage: 10 MG, UNK

REACTIONS (4)
  - Convulsion [Unknown]
  - Disorientation [Unknown]
  - Fatigue [Unknown]
  - Headache [Unknown]
